FAERS Safety Report 7586359-5 (Version None)
Quarter: 2011Q2

REPORT INFORMATION
  Report Type: 
  Country: None (occurrence: None)
  Receive Date: 20110630
  Receipt Date: 20110630
  Transmission Date: 20111010
  Serious: Yes (Hospitalization)
  Sender: FDA-Public Use
  Company Number: None

PATIENT
  Sex: Female
  Weight: 78 kg

DRUGS (2)
  1. TAXOL [Suspect]
     Dosage: 325 MG
  2. CARBOPLATIN [Suspect]
     Dosage: 400 MG

REACTIONS (5)
  - MENTAL STATUS CHANGES [None]
  - BACTERAEMIA [None]
  - FUNGAL INFECTION [None]
  - DEVICE RELATED INFECTION [None]
  - ASTHENIA [None]
